FAERS Safety Report 20029628 (Version 1)
Quarter: 2021Q4

REPORT INFORMATION
  Report Type: Spontaneous
  Country: US (occurrence: US)
  Receive Date: 20211103
  Receipt Date: 20211103
  Transmission Date: 20220304
  Serious: No
  Sender: FDA-Public Use
  Company Number: US-UPSHER-SMITH LABORATORIES, LLC-2020USL00616

PATIENT
  Age: 76 Year
  Sex: Female
  Weight: 67.12 kg

DRUGS (25)
  1. JANTOVEN [Suspect]
     Active Substance: WARFARIN SODIUM
     Indication: Anticoagulant therapy
     Dosage: 4 MG
     Dates: start: 20201027, end: 20201028
  2. JANTOVEN [Suspect]
     Active Substance: WARFARIN SODIUM
     Indication: Cerebrovascular accident
     Dosage: 3.75 MG
     Dates: start: 20201029, end: 20201030
  3. JANTOVEN [Suspect]
     Active Substance: WARFARIN SODIUM
     Dosage: 4 MG
     Dates: start: 20201031, end: 20201108
  4. JANTOVEN [Suspect]
     Active Substance: WARFARIN SODIUM
     Dosage: 3.5 MG
     Dates: start: 20201109, end: 20201110
  5. JANTOVEN [Suspect]
     Active Substance: WARFARIN SODIUM
     Dosage: 3.25 MG
     Dates: start: 20201111, end: 20201111
  6. JANTOVEN [Suspect]
     Active Substance: WARFARIN SODIUM
     Dosage: 2 MG
     Dates: start: 20201112, end: 20201112
  7. JANTOVEN [Suspect]
     Active Substance: WARFARIN SODIUM
     Dosage: 5 MG
     Dates: start: 20201115, end: 20201116
  8. JANTOVEN [Suspect]
     Active Substance: WARFARIN SODIUM
     Dosage: 4 MG
     Dates: start: 20201117
  9. ASPIRIN [Concomitant]
     Active Substance: ASPIRIN
     Dosage: UNK, EVERY 48 HOURS (MORNING)
  10. UNSPECIFIED STOOL SOFTENER [Concomitant]
     Dosage: UNK, 1X/DAY (MORNING)
  11. HYDROCHLOROTHIAZIDE [Concomitant]
     Active Substance: HYDROCHLOROTHIAZIDE
     Dosage: 1 DOSAGE UNITS, 1X/DAY IN THE MORNING
  12. AMLODIPINE [Concomitant]
     Active Substance: AMLODIPINE BESYLATE
     Dosage: 5 MG, 1X/DAY (MORNING)
  13. CARVEDILOL [Concomitant]
     Active Substance: CARVEDILOL
     Dosage: 25 MG, 1X/DAY (MORNING)
  14. KLOR-CON M [Concomitant]
     Active Substance: POTASSIUM CHLORIDE
     Dosage: 10 MEQ, 1X/DAY (MORNING)
  15. ESCITALOPRAM [Concomitant]
     Active Substance: ESCITALOPRAM OXALATE
     Dosage: 10 MG, 1X/DAY (MORNING)
  16. FENOFIBRATE [Concomitant]
     Active Substance: FENOFIBRATE
     Dosage: 145 MG, 1X/DAY (MORNING)
  17. LOSARTAN [Concomitant]
     Active Substance: LOSARTAN
     Dosage: 50 MG, 2X/DAY (MORNING AND AFTERNOON)
  18. LEVETIRACETAM [Concomitant]
     Active Substance: LEVETIRACETAM
     Dosage: 1250 MG, 1X/DAY (AFTERNOONS)
  19. ALENDRONATE [Concomitant]
     Active Substance: ALENDRONATE SODIUM
     Dosage: 70 MG, 1X/WEEK (SUNDAYS)
  20. ATORVASTATIN [Concomitant]
     Active Substance: ATORVASTATIN
     Dosage: 20 MG, 1X/DAY (AFTERNOON)
  21. CETIRIZINE [Concomitant]
     Active Substance: CETIRIZINE HYDROCHLORIDE
     Dosage: 20 MG, 1X/DAY (AFTERNOONS)
  22. AMITRIPTYLINE [Concomitant]
     Active Substance: AMITRIPTYLINE
     Dosage: 10 MG, 1X/DAY (AFTERNOONS)
  23. TRAZODONE [Concomitant]
     Active Substance: TRAZODONE HYDROCHLORIDE
     Dosage: 100 MG, 1X/DAY (AT BEDTIME)
  24. MELATONIN [Concomitant]
     Active Substance: MELATONIN
     Dosage: 10 MG, 1X/DAY (AT BEDTIME)
  25. LAMOTRIGINE [Concomitant]
     Active Substance: LAMOTRIGINE
     Dosage: 25 MG
     Dates: start: 20201115

REACTIONS (3)
  - Weight decreased [Recovered/Resolved]
  - International normalised ratio increased [Recovered/Resolved]
  - International normalised ratio decreased [Recovering/Resolving]

NARRATIVE: CASE EVENT DATE: 20201001
